FAERS Safety Report 9086835 (Version 1)
Quarter: 2013Q1

REPORT INFORMATION
  Report Type: Report from Study
  Country: US (occurrence: US)
  Receive Date: 20130131
  Receipt Date: 20130131
  Transmission Date: 20140127
  Serious: No
  Sender: FDA-Public Use
  Company Number: US-ABBOTT-12P-163-0949921-00

PATIENT
  Age: 59 Year
  Sex: Female

DRUGS (7)
  1. HUMIRA [Suspect]
     Dates: start: 2012
  2. HUMIRA [Suspect]
     Dosage: WEEKLY
     Dates: end: 201201
  3. HUMIRA [Suspect]
     Dates: start: 201201
  4. HUMIRA [Suspect]
     Dosage: RESUMED WEEKLY
     Dates: start: 201204
  5. LEVOTHYROXINE [Concomitant]
     Indication: HYPOTHYROIDISM
     Route: 048
  6. METOPROLOL/HCTZ [Concomitant]
     Indication: HYPERTENSION
  7. VITAMIN D [Concomitant]
     Indication: PRODUCT USED FOR UNKNOWN INDICATION

REACTIONS (6)
  - Injection site vesicles [Recovered/Resolved]
  - Incorrect dose administered [Recovered/Resolved]
  - Blood cholesterol increased [Unknown]
  - Arthralgia [Recovering/Resolving]
  - Psoriasis [Recovering/Resolving]
  - Injection site pain [Recovered/Resolved]
